FAERS Safety Report 7485980-2 (Version None)
Quarter: 2011Q2

REPORT INFORMATION
  Report Type: 
  Country: None (occurrence: None)
  Receive Date: 20110517
  Receipt Date: 20110208
  Transmission Date: 20111010
  Serious: Yes (Other)
  Sender: FDA-Public Use
  Company Number: US-BAYER-2011-016456

PATIENT
  Age: 31 Year
  Sex: Female
  Weight: 77.098 kg

DRUGS (6)
  1. FLEXERIL [Concomitant]
     Dosage: 10 MG, UNK
  2. VICODIN ES [Concomitant]
     Dosage: 750 MG, UNK
  3. YAZ [Suspect]
  4. TRAZODONE HCL [Concomitant]
     Dosage: 150 MG, UNK
  5. NEURONTIN [Concomitant]
     Dosage: 300 MG, QD
  6. YAZ [Suspect]
     Indication: PREMENSTRUAL SYNDROME
     Dosage: UNK
     Dates: start: 20071101, end: 20090101

REACTIONS (4)
  - BILIARY DYSKINESIA [None]
  - ABDOMINAL PAIN [None]
  - ABDOMINAL PAIN UPPER [None]
  - VOMITING [None]
